FAERS Safety Report 24410209 (Version 2)
Quarter: 2024Q4

REPORT INFORMATION
  Report Type: Report from Study
  Country: IN (occurrence: IN)
  Receive Date: 20241008
  Receipt Date: 20241018
  Transmission Date: 20250115
  Serious: Yes (Hospitalization)
  Sender: CIPLA
  Company Number: IN-CIPLA LTD.-2024IN10908

PATIENT

DRUGS (8)
  1. METOPROLOL SUCCINATE [Suspect]
     Active Substance: METOPROLOL SUCCINATE
     Indication: Product used for unknown indication
     Dosage: STRENGTH: 50 (UNITS UNSPECIFIED), DOSE: 1 (UNITS UNSPECIFIED), FREQUENCY: 1 (UNITS UNSPECIFIED)
     Route: 048
     Dates: start: 20240819
  2. TELMISARTAN [Suspect]
     Active Substance: TELMISARTAN
     Indication: Cardiac disorder
     Dosage: STRENGTH: 40 (UNITS UNSPECIFIED), DOSE: 1 (UNITS UNSPECIFIED), FREQUENCY: 1 (UNITS UNSPECIFIED)
     Route: 048
     Dates: start: 20240819
  3. CLOPIVAS AP [Concomitant]
     Indication: Product used for unknown indication
     Dosage: UNK, STRENGTH: 75 (UNITS UNSPECIFIED)
     Route: 065
  4. AVAS [Concomitant]
     Indication: Product used for unknown indication
     Dosage: UNK, STRENGTH: 40 (UNITS UNSPECIFIED)
     Route: 065
  5. UDAPA [Concomitant]
     Indication: Product used for unknown indication
     Dosage: UNK
     Route: 065
  6. ISONIT [Concomitant]
     Indication: Product used for unknown indication
     Dosage: UNK, STRENGTH: 2.6 (UNITS UNSPECIFIED)
     Route: 065
  7. PANTOMAG [Concomitant]
     Indication: Product used for unknown indication
     Dosage: UNK, STRENGTH: 40 (UNITS UNSPECIFIED)
     Route: 065
  8. SOTRET [Concomitant]
     Active Substance: ISOTRETINOIN
     Indication: Product used for unknown indication
     Dosage: UNK, STRENGTH: 20 (UNITS UNSPECIFIED)
     Route: 065

REACTIONS (5)
  - Mobility decreased [Recovered/Resolved]
  - Hypophagia [Recovered/Resolved]
  - Anxiety disorder [Recovered/Resolved]
  - Pain in extremity [Recovered/Resolved]
  - Asthenia [Recovered/Resolved]

NARRATIVE: CASE EVENT DATE: 20240101
